FAERS Safety Report 20263947 (Version 1)
Quarter: 2021Q4

REPORT INFORMATION
  Report Type: Spontaneous
  Country: US (occurrence: None)
  Receive Date: 20211230
  Receipt Date: 20211230
  Transmission Date: 20220303
  Serious: Yes (Other)
  Sender: FDA-Public Use
  Company Number: None

PATIENT
  Age: 8 Year
  Sex: Female
  Weight: 29.7 kg

DRUGS (1)
  1. MIRALAX [Suspect]
     Active Substance: POLYETHYLENE GLYCOL 3350
     Indication: Constipation
     Dosage: FREQUENCY : DAILY;?
     Route: 048
     Dates: start: 20211207, end: 20211229

REACTIONS (3)
  - Depression [None]
  - Mood swings [None]
  - Anxiety [None]

NARRATIVE: CASE EVENT DATE: 20211229
